FAERS Safety Report 7068893-X (Version None)
Quarter: 2010Q4

REPORT INFORMATION
  Report Type: 
  Country: None (occurrence: None)
  Receive Date: 20101028
  Receipt Date: 20090925
  Transmission Date: 20110411
  Serious: No
  Sender: FDA-Public Use
  Company Number: US-KINGPHARMUSA00001-K200901188

PATIENT
  Sex: Male

DRUGS (26)
  1. SYNERCID [Suspect]
     Indication: GROIN ABSCESS
     Dosage: 575 MG
     Route: 042
     Dates: start: 20090911, end: 20090927
  2. SYNERCID [Suspect]
     Indication: INFECTION
  3. PHENERGAN [Concomitant]
     Dosage: 12.5/25
     Route: 042
  4. NEUTRA-PHOS [Concomitant]
     Dosage: 1 PACK BID
  5. POTASSIUM CHLORIDE [Concomitant]
     Dosage: 40 MEQ, QD
     Route: 048
  6. NYSTATIN [Concomitant]
     Dosage: 40 ML, QID
     Route: 048
  7. ZOFRAN [Concomitant]
     Dosage: 4 MG, PRN
  8. PROTONIX [Concomitant]
     Dosage: 40 MG, QD
     Route: 042
  9. ACETAMINOPHEN [Concomitant]
     Dosage: 650 MG, PRN
  10. COMBIVENT [Concomitant]
     Dosage: 6 DF, BID
  11. ALPRAZOLAM [Concomitant]
     Dosage: 0.25 MG, PRN
  12. PULMICORT [Concomitant]
     Dosage: 0.5 MG, BID
  13. LEXAPRO [Concomitant]
     Dosage: 10 MG, QD
  14. LASIX [Concomitant]
     Dosage: 40 MG, QD
     Route: 042
  15. GUAIFENASIN [Concomitant]
     Dosage: 600 MG, QID
  16. VICODIN [Concomitant]
     Dosage: 500 MG, PRN
  17. MIRALAX [Concomitant]
     Dosage: 17 G, QD
  18. INSULIN [Concomitant]
     Dosage: UNK %, PRN
  19. DEXTROSE [Concomitant]
     Dosage: 50 %, UNK
  20. LACTINEX [Concomitant]
     Dosage: 1 PACK TID
  21. IMODIUM [Concomitant]
     Dosage: 2 MG, PRN
  22. SOLU-MEDROL [Concomitant]
     Dosage: 30 MG, BID
     Route: 042
  23. PROVIGIL [Concomitant]
     Dosage: 200 MG, QD
  24. MORPHINE SULFATE [Concomitant]
     Indication: PAIN
     Dosage: 1-2 MG, UNK
     Route: 042
  25. ZOSYN [Concomitant]
     Indication: SKIN INFECTION
     Dosage: UNK
     Route: 042
     Dates: start: 20090101, end: 20090901
  26. LEVAQUIN [Concomitant]
     Indication: SKIN INFECTION
     Dosage: UNK
     Route: 042
     Dates: start: 20090101, end: 20090901

REACTIONS (2)
  - DRUG INEFFECTIVE [None]
  - WRONG TECHNIQUE IN DRUG USAGE PROCESS [None]
